FAERS Safety Report 5415061-0 (Version None)
Quarter: 2007Q3

REPORT INFORMATION
  Report Type: 
  Country: None (occurrence: None)
  Receive Date: 20070815
  Receipt Date: 20070509
  Transmission Date: 20080115
  Serious: No
  Sender: FDA-Public Use
  Company Number: A0650636A

PATIENT
  Age: 50 Year
  Sex: Female

DRUGS (11)
  1. COREG CR [Suspect]
     Indication: HYPERTENSION
     Dosage: 10MG PER DAY
     Route: 048
     Dates: start: 20070403
  2. REQUIP [Suspect]
     Indication: RESTLESS LEGS SYNDROME
     Dosage: 1MG PER DAY
     Route: 048
     Dates: start: 20070402
  3. BACLOFEN [Concomitant]
  4. AVANDAMET [Concomitant]
  5. LOVASTATIN [Concomitant]
  6. METHADONE HCL [Concomitant]
  7. FUROSEMIDE [Concomitant]
  8. AMBIEN [Concomitant]
  9. EFFEXOR [Concomitant]
  10. KLOR-CON [Concomitant]
  11. LISINOPRIL [Concomitant]

REACTIONS (3)
  - DRUG INEFFECTIVE [None]
  - THERAPEUTIC RESPONSE UNEXPECTED [None]
  - WEIGHT DECREASED [None]
